FAERS Safety Report 5789057-3 (Version None)
Quarter: 2008Q2

REPORT INFORMATION
  Report Type: 
  Country: None (occurrence: None)
  Receive Date: 20080626
  Receipt Date: 20080619
  Transmission Date: 20081010
  Serious: Yes (Hospitalization)
  Sender: FDA-Public Use
  Company Number: B0526185A

PATIENT
  Age: 31 Year
  Sex: Male

DRUGS (19)
  1. DEROXAT [Suspect]
     Indication: DRUG USE FOR UNKNOWN INDICATION
     Route: 065
  2. PROGRAF [Suspect]
     Indication: DRUG USE FOR UNKNOWN INDICATION
     Route: 065
  3. CORTANCYL [Suspect]
     Indication: DRUG USE FOR UNKNOWN INDICATION
     Route: 065
  4. FLAGYL [Suspect]
     Indication: DRUG USE FOR UNKNOWN INDICATION
     Route: 065
  5. ZITHROMAX [Suspect]
     Indication: DRUG USE FOR UNKNOWN INDICATION
     Route: 065
  6. BACTRIM [Suspect]
     Indication: DRUG USE FOR UNKNOWN INDICATION
     Route: 065
  7. ACTONEL [Suspect]
     Indication: DRUG USE FOR UNKNOWN INDICATION
     Route: 065
  8. OMEPRAZOLE [Suspect]
     Indication: DRUG USE FOR UNKNOWN INDICATION
     Route: 065
  9. CELLCEPT [Concomitant]
     Route: 065
  10. IMMUNOSUPPRESSIVE [Concomitant]
     Route: 065
  11. SINGULAIR [Concomitant]
     Route: 065
  12. IDEOS [Concomitant]
     Route: 065
  13. CREON [Concomitant]
     Route: 065
  14. TOCO 500 [Concomitant]
     Route: 065
  15. MOTILIUM [Concomitant]
     Route: 065
  16. INSULATARD [Concomitant]
     Route: 065
  17. NOVORAPID [Concomitant]
     Route: 065
  18. OXYGEN THERAPY [Concomitant]
     Route: 065
  19. LIPANTHYL [Concomitant]
     Route: 065

REACTIONS (3)
  - OCULAR TOXICITY [None]
  - SCOTOMA [None]
  - VISUAL ACUITY REDUCED [None]
